FAERS Safety Report 9748277 (Version 4)
Quarter: 2014Q1

REPORT INFORMATION
  Report Type: Report from Study
  Country: US (occurrence: US)
  Receive Date: 20131212
  Receipt Date: 20140207
  Transmission Date: 20141002
  Serious: Yes (Other)
  Sender: FDA-Public Use
  Company Number: US-JNJFOC-20131102681

PATIENT
  Age: 52 Year
  Sex: Female

DRUGS (8)
  1. XARELTO [Suspect]
     Indication: PULMONARY EMBOLISM
     Route: 048
     Dates: start: 20131022, end: 2013
  2. LISINOPRIL [Concomitant]
     Indication: HYPERTENSION
     Route: 065
     Dates: start: 20110401
  3. NIFEDIPINE [Concomitant]
     Indication: HYPERTENSION
     Route: 065
     Dates: start: 20110401
  4. ATENOLOL [Concomitant]
     Indication: HYPERTENSION
     Route: 065
     Dates: start: 20110401
  5. VITAMIN D3 [Concomitant]
     Route: 065
     Dates: start: 20120804
  6. ATRIPLA [Concomitant]
     Route: 065
     Dates: start: 1998
  7. ATRIPLA [Concomitant]
     Route: 065
     Dates: start: 1998
  8. ATRIPLA [Concomitant]
     Route: 065
     Dates: start: 1998

REACTIONS (5)
  - Lower gastrointestinal haemorrhage [Recovered/Resolved]
  - Dyspnoea [Recovered/Resolved]
  - Dizziness [Recovered/Resolved]
  - Abdominal pain upper [Recovered/Resolved]
  - Vomiting [Recovered/Resolved]
